FAERS Safety Report 5400220-3 (Version None)
Quarter: 2007Q3

REPORT INFORMATION
  Report Type: 
  Country: None (occurrence: None)
  Receive Date: 20070727
  Receipt Date: 20070727
  Transmission Date: 20080115
  Serious: Yes (Hospitalization)
  Sender: FDA-Public Use
  Company Number: None

PATIENT
  Age: 85 Year
  Sex: Male

DRUGS (1)
  1. DIGOXIN [Suspect]
     Indication: ATRIAL FIBRILLATION
     Dosage: 0.25MG  EVERY DAY  PO
     Route: 048
     Dates: start: 20010123, end: 20070627

REACTIONS (1)
  - THERAPEUTIC AGENT TOXICITY [None]
